FAERS Safety Report 15216041 (Version 1)
Quarter: 2018Q3

REPORT INFORMATION
  Report Type: Spontaneous
  Country: US (occurrence: US)
  Receive Date: 20180703
  Receipt Date: 20180703
  Transmission Date: 20181010
  Serious: Yes (Disabling)
  Sender: FDA-Public Use
  Company Number: None

PATIENT
  Age: 38 Year
  Sex: Male
  Weight: 81 kg

DRUGS (3)
  1. PROPECIA [Suspect]
     Active Substance: FINASTERIDE
     Indication: ALOPECIA
     Dosage: ?          QUANTITY:1 TABLET(S);?
     Route: 048
     Dates: start: 20041002, end: 20070908
  2. VITAMIN D [Concomitant]
     Active Substance: CHOLECALCIFEROL
  3. ALLEGRA?D [Concomitant]
     Active Substance: FEXOFENADINE\PSEUDOEPHEDRINE

REACTIONS (17)
  - Erectile dysfunction [None]
  - Sperm concentration decreased [None]
  - Anhedonia [None]
  - Anorgasmia [None]
  - Peripheral nerve destruction [None]
  - Paraesthesia [None]
  - Memory impairment [None]
  - Depression [None]
  - Dyspepsia [None]
  - Nervous system disorder [None]
  - Adverse event [None]
  - Anxiety [None]
  - Spermatozoa abnormal [None]
  - Testicular pain [None]
  - Vitiligo [None]
  - Thinking abnormal [None]
  - Sexual dysfunction [None]

NARRATIVE: CASE EVENT DATE: 20070908
